FAERS Safety Report 8517216-5 (Version None)
Quarter: 2012Q3

REPORT INFORMATION
  Report Type: 
  Country: None (occurrence: None)
  Receive Date: 20120718
  Receipt Date: 20120709
  Transmission Date: 20120928
  Serious: Yes (Hospitalization)
  Sender: FDA-Public Use
  Company Number: CL-SANOFI-AVENTIS-2012SA049469

PATIENT
  Age: 62 Year
  Sex: Male

DRUGS (5)
  1. OXALIPLATIN [Suspect]
     Dosage: 5TH CHEMOTHERAPY CYCLE
     Route: 042
     Dates: start: 20120705, end: 20120705
  2. CAPECITABINE [Concomitant]
     Indication: RECTAL CANCER
     Route: 042
  3. OXALIPLATIN [Suspect]
     Dosage: 5TH CHEMOTHERAPY CYCLE
     Route: 042
     Dates: start: 20120705, end: 20120705
  4. OXALIPLATIN [Suspect]
     Indication: RECTAL CANCER
     Dosage: 5TH CHEMOTHERAPY CYCLE
     Route: 042
     Dates: start: 20120705, end: 20120705
  5. OXALIPLATIN [Suspect]
     Dosage: 5TH CHEMOTHERAPY CYCLE
     Route: 042
     Dates: start: 20120705, end: 20120705

REACTIONS (3)
  - PARESIS [None]
  - PAIN IN EXTREMITY [None]
  - DYSARTHRIA [None]
